FAERS Safety Report 10080550 (Version 2)
Quarter: 2014Q2

REPORT INFORMATION
  Report Type: Report from Study
  Country: BR (occurrence: BR)
  Receive Date: 20140416
  Receipt Date: 20140416
  Transmission Date: 20141212
  Serious: Yes (Hospitalization, Other)
  Sender: FDA-Public Use
  Company Number: BR-ROCHE-698896

PATIENT
  Age: 67 Year
  Sex: Female
  Weight: 60 kg

DRUGS (12)
  1. MABTHERA [Suspect]
     Indication: RHEUMATOID ARTHRITIS
     Dosage: STRENGTH:  500 MG/50 ML; FORM INFUSION
     Route: 042
     Dates: start: 20090901, end: 20091005
  2. MABTHERA [Suspect]
     Dosage: STRENGTH:  500 MG/50 ML; FORM INFUSION
     Route: 042
     Dates: start: 20100621, end: 20100721
  3. MABTHERA [Suspect]
     Dosage: MOST RECENT INFUSION: AUG/2013
     Route: 042
  4. MABTHERA [Suspect]
     Dosage: RECENT DOSE ON 20/FEB/2014
     Route: 042
  5. NEOFOLIN [Concomitant]
     Indication: ANAEMIA
     Route: 065
  6. CITONEURIN [Concomitant]
     Indication: SUPPLEMENTATION THERAPY
  7. ACTONEL [Concomitant]
     Route: 065
  8. ACTONEL [Concomitant]
     Route: 065
  9. PANTOPRAZOLE [Concomitant]
     Dosage: DRUG: PANTOPAZ
     Route: 065
  10. FOLIC ACID [Concomitant]
  11. CALTRATE [Concomitant]
     Dosage: START DATE: A LONG TIME AGO
     Route: 065
  12. METHOTREXATE [Concomitant]
     Route: 065

REACTIONS (12)
  - Herpes zoster [Recovered/Resolved]
  - Femur fracture [Recovered/Resolved with Sequelae]
  - Hand deformity [Unknown]
  - Muscle swelling [Recovered/Resolved]
  - Dysphonia [Recovered/Resolved]
  - Influenza [Not Recovered/Not Resolved]
  - Myalgia [Recovered/Resolved]
  - Nasopharyngitis [Recovering/Resolving]
  - Oropharyngeal pain [Recovered/Resolved]
  - Hypoaesthesia [Recovered/Resolved]
  - Vitamin D decreased [Unknown]
  - Spinal pain [Recovered/Resolved]
